FAERS Safety Report 9339731 (Version 7)
Quarter: 2014Q1

REPORT INFORMATION
  Report Type: Report from Study
  Country: BE (occurrence: BE)
  Receive Date: 20130610
  Receipt Date: 20140310
  Transmission Date: 20141002
  Serious: Yes (Hospitalization)
  Sender: FDA-Public Use
  Company Number: BE-ROCHE-1231138

PATIENT
  Age: 51 Year
  Sex: Female
  Weight: 59 kg

DRUGS (3)
  1. TRASTUZUMAB EMTANSINE [Suspect]
     Indication: BREAST CANCER METASTATIC
     Dosage: LAST DOSE BEFORE ONSET OF HERPES ZOSTER INFECTION: 08/MAY/2013
     Route: 042
     Dates: start: 20130419
  2. CONTRAMAL [Concomitant]
     Route: 065
  3. LYRICA [Concomitant]
     Route: 065

REACTIONS (1)
  - Herpes zoster [Recovered/Resolved]
